FAERS Safety Report 11441531 (Version 1)
Quarter: 2015Q3

REPORT INFORMATION
  Report Type: Spontaneous
  Country: US (occurrence: US)
  Receive Date: 20150901
  Receipt Date: 20150901
  Transmission Date: 20151125
  Serious: Yes (Death, Other)
  Sender: FDA-Public Use
  Company Number: US-PFIZER INC-2015283492

PATIENT
  Sex: Male
  Weight: 3.16 kg

DRUGS (2)
  1. GEMONIL [Suspect]
     Active Substance: METHARBITAL
     Indication: PETIT MAL EPILEPSY
     Dosage: 150 MG, DAILY
     Route: 064
  2. CELONTIN [Suspect]
     Active Substance: METHSUXIMIDE
     Indication: PETIT MAL EPILEPSY
     Dosage: 900 MG, DAILY
     Route: 064

REACTIONS (4)
  - Haematoma [Fatal]
  - Maternal exposure timing unspecified [Recovered/Resolved]
  - Peritoneal haemorrhage [Fatal]
  - Subdural haemorrhage [Fatal]
